FAERS Safety Report 20979514 (Version 2)
Quarter: 2022Q2

REPORT INFORMATION
  Report Type: Other
  Country: US (occurrence: None)
  Receive Date: 20220620
  Receipt Date: 20220628
  Transmission Date: 20220720
  Serious: Yes (Other)
  Sender: FDA-Public Use
  Company Number: US-ROCHE-3115920

PATIENT
  Sex: Female
  Weight: 53.118 kg

DRUGS (1)
  1. OCREVUS [Suspect]
     Active Substance: OCRELIZUMAB
     Indication: Primary progressive multiple sclerosis
     Dosage: (PRESCRIBED AS INFUSE 300 MG IV IN DAY 1 AND 15 THEN 600 MG IV EVERY 6 MONTHS)?DATE OF TREATMENT: 15
     Route: 042
     Dates: start: 202110

REACTIONS (5)
  - Pneumonia [Unknown]
  - Encephalopathy [Unknown]
  - Delirium [Unknown]
  - Blood sodium decreased [Unknown]
  - Blood potassium decreased [Unknown]
